FAERS Safety Report 19123510 (Version 1)
Quarter: 2021Q2

REPORT INFORMATION
  Report Type: Spontaneous
  Country: US (occurrence: US)
  Receive Date: 20210412
  Receipt Date: 20210412
  Transmission Date: 20210717
  Serious: No
  Sender: FDA-Public Use
  Company Number: US-GW PHARMA-202104USGW01493

PATIENT

DRUGS (3)
  1. ZARONTIN [Concomitant]
     Active Substance: ETHOSUXIMIDE
     Indication: PRODUCT USED FOR UNKNOWN INDICATION
     Dosage: UNK
     Route: 065
  2. EPIDIOLEX [Suspect]
     Active Substance: CANNABIDIOL
     Indication: LENNOX-GASTAUT SYNDROME
     Dosage: UNK
     Route: 048
     Dates: start: 202003
  3. EPIDIOLEX [Suspect]
     Active Substance: CANNABIDIOL
     Dosage: 500 MILLIGRAM, BID (16.96 MG/KG/DAY)

REACTIONS (6)
  - Retching [Unknown]
  - Vomiting [Unknown]
  - Therapeutic response unexpected [Unknown]
  - Drug ineffective [Unknown]
  - Product taste abnormal [Unknown]
  - Product odour abnormal [Unknown]
